FAERS Safety Report 6780775-7 (Version None)
Quarter: 2010Q2

REPORT INFORMATION
  Report Type: 
  Country: None (occurrence: None)
  Receive Date: 20100621
  Receipt Date: 20100609
  Transmission Date: 20101027
  Serious: Yes (Other)
  Sender: FDA-Public Use
  Company Number: US-JNJFOC-20100603555

PATIENT
  Sex: Male
  Weight: 86.18 kg

DRUGS (3)
  1. STELARA [Suspect]
     Indication: PSORIASIS
     Route: 058
  2. STELARA [Suspect]
     Route: 058
  3. OTHER DERMATOLOGICALS [Concomitant]
     Indication: PSORIASIS
     Route: 061

REACTIONS (1)
  - PLATELET COUNT DECREASED [None]
